FAERS Safety Report 15897620 (Version 1)
Quarter: 2019Q1

REPORT INFORMATION
  Report Type: Report from Study
  Country: None (occurrence: BR)
  Receive Date: 20190131
  Receipt Date: 20190131
  Transmission Date: 20190417
  Serious: Yes (Hospitalization)
  Sender: FDA-Public Use
  Company Number: BR-ABBVIE-19K-020-2644381-00

PATIENT
  Age: 43 Year
  Sex: Female
  Weight: 56 kg

DRUGS (1)
  1. HUMIRA [Suspect]
     Active Substance: ADALIMUMAB
     Indication: RHEUMATOID ARTHRITIS
     Route: 058
     Dates: start: 20160609

REACTIONS (10)
  - Vomiting [Recovering/Resolving]
  - Weight decreased [Recovered/Resolved]
  - Pulmonary microemboli [Unknown]
  - Thrombosis [Unknown]
  - Dizziness [Recovered/Resolved]
  - Labyrinthitis [Recovering/Resolving]
  - Haematoma [Unknown]
  - Back pain [Recovered/Resolved]
  - Dizziness [Recovering/Resolving]
  - Fatigue [Recovered/Resolved]

NARRATIVE: CASE EVENT DATE: 20181022
